FAERS Safety Report 6765718-4 (Version None)
Quarter: 2010Q2

REPORT INFORMATION
  Report Type: 
  Country: None (occurrence: None)
  Receive Date: 20100611
  Receipt Date: 20100601
  Transmission Date: 20101027
  Serious: Yes (Other)
  Sender: FDA-Public Use
  Company Number: US-TEVA-236557USA

PATIENT
  Age: 43 Year
  Sex: Female
  Weight: 78 kg

DRUGS (15)
  1. PACLITAXOL INJECTION (ZGP) 30MG/5ML, 150MG/25ML [Suspect]
     Indication: BREAST CANCER
     Dosage: 148 MG WEEKLY
     Route: 042
     Dates: start: 20080313, end: 20080320
  2. PACLITAXOL INJECTION (ZGP) 30MG/5ML, 150MG/25ML [Suspect]
     Dosage: 125 MG WEEKLY
     Route: 042
     Dates: start: 20080402, end: 20080402
  3. PACLITAXOL INJECTION (ZGP) 30MG/5ML, 150MG/25ML [Suspect]
     Dosage: 150 MG WEEKLY 3 OF 4
     Route: 042
     Dates: start: 20080417, end: 20080430
  4. SUNITINIB MALATE [Suspect]
     Indication: BREAST CANCER
     Route: 048
     Dates: start: 20080313, end: 20080327
  5. SUNITINIB MALATE [Suspect]
     Route: 048
     Dates: start: 20080417, end: 20080505
  6. LORAZEPAM [Concomitant]
     Dates: start: 20030701
  7. ZOLPIDEM TARTRATE [Concomitant]
     Dates: start: 20030701
  8. TRAMADOL [Concomitant]
     Dates: start: 20080201
  9. PROCHLORPERAZINE EDISYLATE [Concomitant]
     Dates: start: 20080313
  10. IBUPROFEN [Concomitant]
     Dates: start: 20030101
  11. FENTANYL [Concomitant]
     Dates: start: 20080301
  12. DEXAMETHASONE [Concomitant]
     Dates: start: 20080312
  13. CYCLOBENZAPRINE HYDROCHLORIDE [Concomitant]
     Dates: start: 20070701
  14. ZOLEDRONIC ACID [Concomitant]
     Dates: start: 20080214
  15. VENLAFAXINE [Concomitant]
     Dates: start: 20040101

REACTIONS (1)
  - CHOLECYSTITIS [None]
